FAERS Safety Report 7621393-8 (Version None)
Quarter: 2011Q3

REPORT INFORMATION
  Report Type: 
  Country: None (occurrence: None)
  Receive Date: 20110719
  Receipt Date: 20110714
  Transmission Date: 20111222
  Serious: Yes (Other)
  Sender: FDA-Public Use
  Company Number: US-PFIZER INC-2011160161

PATIENT
  Sex: Female

DRUGS (2)
  1. IBUPROFEN [Concomitant]
     Indication: TOOTHACHE
     Dosage: 200 MG, DAILY
     Route: 048
  2. CLEOCIN HYDROCHLORIDE [Suspect]
     Indication: TOOTH INFECTION
     Dosage: TWO TSP, EVERY SIX HOURS
     Dates: start: 20110101, end: 20110101

REACTIONS (1)
  - OBSTRUCTIVE AIRWAYS DISORDER [None]
